FAERS Safety Report 4411915-2 (Version None)
Quarter: 2004Q3

REPORT INFORMATION
  Report Type: 
  Country: None (occurrence: None)
  Receive Date: 20040730
  Receipt Date: 20040206
  Transmission Date: 20050211
  Serious: No
  Sender: FDA-Public Use
  Company Number: US-GLAXOSMITHKLINE-A0497089A

PATIENT
  Age: 37 Year
  Sex: Male

DRUGS (4)
  1. ZANTAC [Suspect]
     Dosage: 75MG VARIABLE DOSE
     Route: 048
     Dates: start: 20040131, end: 20040205
  2. ACIPHEX [Concomitant]
  3. ANTACID TAB [Concomitant]
  4. PRILOSEC [Concomitant]

REACTIONS (1)
  - DIZZINESS [None]
